FAERS Safety Report 7282721-9 (Version None)
Quarter: 2011Q1

REPORT INFORMATION
  Report Type: 
  Country: None (occurrence: None)
  Receive Date: 20110209
  Receipt Date: 20110127
  Transmission Date: 20110831
  Serious: Yes (Death, Disabling, Other)
  Sender: FDA-Public Use
  Company Number: US-BAYER-2010-000348

PATIENT
  Sex: Male
  Weight: 63.492 kg

DRUGS (2)
  1. NEXAVAR [Suspect]
     Indication: HEPATIC NEOPLASM MALIGNANT
     Dosage: 400 MG, BID
     Route: 048
     Dates: start: 20101102, end: 20101124
  2. NEXAVAR [Suspect]
     Dosage: 400 MG, UNK
     Route: 048
     Dates: start: 20101201, end: 20101201

REACTIONS (9)
  - NAUSEA [None]
  - MOBILITY DECREASED [None]
  - ASTHENIA [None]
  - EPISTAXIS [None]
  - CONFUSIONAL STATE [None]
  - DEATH [None]
  - WEIGHT DECREASED [None]
  - FATIGUE [None]
  - GAIT DISTURBANCE [None]
